FAERS Safety Report 25439322 (Version 2)
Quarter: 2025Q3

REPORT INFORMATION
  Report Type: Spontaneous
  Country: US (occurrence: US)
  Receive Date: 20250616
  Receipt Date: 20250716
  Transmission Date: 20251020
  Serious: Yes (Hospitalization, Other)
  Sender: ALEMBIC
  Company Number: US-ALEMBIC PHARMACUETICALS LIMITED-2025SCAL000614

PATIENT

DRUGS (6)
  1. DULOXETINE HYDROCHLORIDE [Suspect]
     Active Substance: DULOXETINE HYDROCHLORIDE
     Indication: Product used for unknown indication
     Route: 065
  2. LITHIUM CARBONATE [Suspect]
     Active Substance: LITHIUM CARBONATE
     Indication: Bipolar disorder
     Route: 065
  3. ZIPRASIDONE [Suspect]
     Active Substance: ZIPRASIDONE
     Indication: Confusional state
     Route: 065
  4. ZIPRASIDONE [Suspect]
     Active Substance: ZIPRASIDONE
     Indication: Behaviour disorder
     Route: 065
  5. LORAZEPAM [Suspect]
     Active Substance: LORAZEPAM
     Indication: Agitation
     Route: 065
  6. HALOPERIDOL [Suspect]
     Active Substance: HALOPERIDOL
     Indication: Agitation
     Route: 065

REACTIONS (15)
  - Rhabdomyolysis [Unknown]
  - Dysphagia [Not Recovered/Not Resolved]
  - Neuroleptic malignant syndrome [Unknown]
  - Communication disorder [Not Recovered/Not Resolved]
  - Musculoskeletal stiffness [Unknown]
  - Muscle rigidity [Not Recovered/Not Resolved]
  - Tachycardia [Unknown]
  - Tachypnoea [Unknown]
  - Flushing [Unknown]
  - Hyperhidrosis [Unknown]
  - Pyrexia [Unknown]
  - Autonomic nervous system imbalance [Recovered/Resolved]
  - Disorientation [Not Recovered/Not Resolved]
  - Speech disorder [Not Recovered/Not Resolved]
  - Acute kidney injury [Unknown]
